FAERS Safety Report 9065255 (Version 1)
Quarter: 2013Q1

REPORT INFORMATION
  Report Type: Spontaneous
  Country: BE (occurrence: BE)
  Receive Date: 20130128
  Receipt Date: 20130128
  Transmission Date: 20140127
  Serious: Yes (Death, Hospitalization)
  Sender: FDA-Public Use
  Company Number: PHHY2013BE007424

PATIENT
  Sex: Female

DRUGS (10)
  1. ACLASTA [Suspect]
     Indication: OSTEOPOROSIS
     Dosage: 5 MG, UNK
     Route: 042
     Dates: start: 20110218
  2. SPIRONOLACTONE [Concomitant]
     Indication: CARDIAC FAILURE
     Route: 048
  3. NEBIVOLOL [Concomitant]
     Indication: HYPERTENSION
     Route: 048
  4. ZYPREXA [Concomitant]
     Route: 048
  5. RYTHMODAN [Concomitant]
     Route: 048
  6. ASAFLOW [Concomitant]
     Route: 048
  7. PROTEASE [Concomitant]
     Route: 048
  8. CALCIUM [Concomitant]
     Indication: OSTEOPOROSIS
     Route: 048
  9. BUMETANIDE [Concomitant]
     Route: 048
  10. LANOXIN [Concomitant]
     Indication: CARDIAC FAILURE
     Dosage: UNK
     Route: 048
     Dates: start: 201203

REACTIONS (3)
  - Pneumonia [Fatal]
  - Cardiac failure [Fatal]
  - Pulmonary oedema [Fatal]
